FAERS Safety Report 13361601 (Version 4)
Quarter: 2017Q4

REPORT INFORMATION
  Report Type: Spontaneous
  Country: US (occurrence: US)
  Receive Date: 20170323
  Receipt Date: 20171025
  Transmission Date: 20180320
  Serious: Yes (Hospitalization)
  Sender: FDA-Public Use
  Company Number: US-ROCHE-1867997

PATIENT
  Sex: Female

DRUGS (16)
  1. AMLODIPINE BESYLATE. [Concomitant]
     Active Substance: AMLODIPINE BESYLATE
  2. ASPIRIN. [Concomitant]
     Active Substance: ASPIRIN
  3. ESBRIET [Suspect]
     Active Substance: PIRFENIDONE
     Indication: IDIOPATHIC PULMONARY FIBROSIS
     Dosage: 534 MG IN THE MORNING, 267 MG AT LUNCH AND 534 MG IN THE NIGHT.
     Route: 048
     Dates: start: 20160418
  4. RESTASIS [Concomitant]
     Active Substance: CYCLOSPORINE
  5. SPIRIVA RESPIMAT [Concomitant]
     Active Substance: TIOTROPIUM BROMIDE
  6. VENTOLINE [Concomitant]
     Active Substance: ALBUTEROL
  7. ESBRIET [Suspect]
     Active Substance: PIRFENIDONE
     Dosage: 1 CAPSULE THRICE A DAY
     Route: 048
  8. MYRBETRIQ [Concomitant]
     Active Substance: MIRABEGRON
  9. ZITHROMAX [Concomitant]
     Active Substance: AZITHROMYCIN DIHYDRATE
  10. MUCINEX D [Concomitant]
     Active Substance: GUAIFENESIN\PSEUDOEPHEDRINE HYDROCHLORIDE
  11. FORTEO [Concomitant]
     Active Substance: TERIPARATIDE
  12. MELATONIN [Concomitant]
     Active Substance: MELATONIN
  13. ATORVASTATIN CALCIUM. [Concomitant]
     Active Substance: ATORVASTATIN CALCIUM
  14. PREDNISONE. [Concomitant]
     Active Substance: PREDNISONE
     Route: 065
  15. PREVACID [Concomitant]
     Active Substance: LANSOPRAZOLE
  16. TYLENOL [Concomitant]
     Active Substance: ACETAMINOPHEN

REACTIONS (4)
  - Osteoporosis [Unknown]
  - Rash [Unknown]
  - Diarrhoea [Unknown]
  - Flushing [Unknown]
